FAERS Safety Report 12474063 (Version 1)
Quarter: 2016Q2

REPORT INFORMATION
  Report Type: Spontaneous
  Country: FR (occurrence: FR)
  Receive Date: 20160616
  Receipt Date: 20160616
  Transmission Date: 20160815
  Serious: Yes (Hospitalization)
  Sender: FDA-Public Use
  Company Number: FR-ASTRAZENECA-2016SE64216

PATIENT
  Age: 83 Year
  Sex: Male

DRUGS (15)
  1. DEXAMETHASONE. [Suspect]
     Active Substance: DEXAMETHASONE
     Indication: PLASMA CELL MYELOMA
     Route: 048
     Dates: start: 20160427
  2. OXYNORM [Concomitant]
     Active Substance: OXYCODONE HYDROCHLORIDE
     Dosage: 10.0MG UNKNOWN
  3. PREVISCAN [Concomitant]
     Active Substance: FLUINDIONE
     Dosage: 20.0MG UNKNOWN
  4. NEURONTIN [Concomitant]
     Active Substance: GABAPENTIN
     Dosage: 300.0MG UNKNOWN
  5. ZELITREX [Concomitant]
     Active Substance: VALACYCLOVIR HYDROCHLORIDE
     Dosage: 500.0MG UNKNOWN
  6. REVLIMID [Suspect]
     Active Substance: LENALIDOMIDE
     Indication: PLASMA CELL MYELOMA
     Dosage: 5 MG ONCE DAILY ON DAYS 1-21 OF REPEATED 28-DAY CYCLES  UNKNOWN
     Route: 048
     Dates: start: 20160321, end: 20160515
  7. OXYCONTIN [Concomitant]
     Active Substance: OXYCODONE HYDROCHLORIDE
     Dosage: 20.0MG UNKNOWN
  8. DEXAMETHASONE. [Suspect]
     Active Substance: DEXAMETHASONE
     Indication: PLASMA CELL MYELOMA
     Dosage: RX OR GENERIC NOT SPECIFIED, 10 MG DAILY
     Route: 048
     Dates: start: 20140409
  9. DEXAMETHASONE. [Suspect]
     Active Substance: DEXAMETHASONE
     Indication: PLASMA CELL MYELOMA
     Dosage: RX OR GENERIC NOT SPECIFIED, 10 MG PER WEEK
     Route: 048
     Dates: start: 20151215
  10. ZOLADEX [Suspect]
     Active Substance: GOSERELIN ACETATE
     Indication: PROSTATE CANCER
     Route: 058
     Dates: start: 201305
  11. REVLIMID [Suspect]
     Active Substance: LENALIDOMIDE
     Indication: PLASMA CELL MYELOMA
     Dosage: 5.0MG UNKNOWN
     Route: 048
     Dates: start: 20140409, end: 20160321
  12. HYZAAR [Concomitant]
     Active Substance: HYDROCHLOROTHIAZIDE\LOSARTAN POTASSIUM
     Dosage: 50/12.5 MG, UNKNOWN
  13. LYTOS [Concomitant]
     Active Substance: CLODRONATE DISODIUM
     Dosage: 520.0MG UNKNOWN
  14. FORLAX [Concomitant]
     Active Substance: POLYETHYLENE GLYCOL 4000
     Dosage: 10.0MG UNKNOWN
  15. BACTRIM [Concomitant]
     Active Substance: SULFAMETHOXAZOLE\TRIMETHOPRIM
     Route: 048

REACTIONS (6)
  - Abdominal pain [Unknown]
  - Fluid retention [Unknown]
  - Constipation [Unknown]
  - Oedema peripheral [Recovered/Resolved]
  - Cardiac failure [Recovering/Resolving]
  - Atrioventricular block first degree [Not Recovered/Not Resolved]

NARRATIVE: CASE EVENT DATE: 20160322
